FAERS Safety Report 11100780 (Version 3)
Quarter: 2015Q2

REPORT INFORMATION
  Report Type: Spontaneous
  Country: GB (occurrence: GB)
  Receive Date: 20150508
  Receipt Date: 20150625
  Transmission Date: 20150821
  Serious: Yes (Other)
  Sender: FDA-Public Use
  Company Number: GB-JNJFOC-20150423352

PATIENT
  Age: 49 Year
  Sex: Female

DRUGS (5)
  1. STELARA [Suspect]
     Active Substance: USTEKINUMAB
     Indication: PSORIASIS
     Route: 058
     Dates: start: 201405
  2. CYCLOSPORINE. [Suspect]
     Active Substance: CYCLOSPORINE
     Indication: PRODUCT USED FOR UNKNOWN INDICATION
     Route: 065
     Dates: end: 201502
  3. VITAMIN C [Concomitant]
     Active Substance: ASCORBIC ACID
     Route: 065
  4. IRON [Concomitant]
     Active Substance: IRON
     Route: 065
  5. COD LIVER OIL [Concomitant]
     Active Substance: COD LIVER OIL
     Route: 065

REACTIONS (1)
  - Basedow^s disease [Unknown]

NARRATIVE: CASE EVENT DATE: 201502
